FAERS Safety Report 6524796-8 (Version None)
Quarter: 2010Q1

REPORT INFORMATION
  Report Type: 
  Country: None (occurrence: None)
  Receive Date: 20100104
  Receipt Date: 20091223
  Transmission Date: 20100710
  Serious: Yes (Hospitalization, Other)
  Sender: FDA-Public Use
  Company Number: US-ELI_LILLY_AND_COMPANY-US200912005450

PATIENT
  Sex: Male

DRUGS (13)
  1. HUMULIN 70/30 [Suspect]
     Indication: DIABETES MELLITUS
     Dosage: UNK, DAILY (1/D)
     Dates: start: 19980101, end: 20010101
  2. HUMULIN R [Suspect]
     Indication: DIABETES MELLITUS
     Dosage: UNK, DAILY (1/D)
     Dates: start: 19980101, end: 20010101
  3. HUMULIN N [Suspect]
     Indication: DIABETES MELLITUS
     Dosage: UNK, DAILY (1/D)
     Dates: start: 19980101, end: 20010101
  4. HUMALOG [Suspect]
     Indication: DIABETES MELLITUS
     Dosage: 10 U, EACH MORNING
     Dates: start: 19980101
  5. HUMALOG [Suspect]
     Dosage: 9 U, OTHER
     Dates: start: 19980101
  6. HUMALOG [Suspect]
     Dosage: 10 U, EACH EVENING
     Dates: start: 19980101
  7. HUMALOG [Suspect]
     Dosage: 10 U, EACH MORNING
  8. HUMALOG [Suspect]
     Dosage: 9 U, OTHER
  9. HUMALOG [Suspect]
     Dosage: 10 U, EACH EVENING
  10. TOPROL-XL [Concomitant]
  11. BABY ASPIRIN [Concomitant]
     Dosage: 81 MG, UNK
  12. PLAVIX [Concomitant]
     Dosage: 75 MG, UNK
  13. VYTORIN [Concomitant]

REACTIONS (22)
  - ASTHENIA [None]
  - BENIGN PROSTATIC HYPERPLASIA [None]
  - BLOOD GLUCOSE DECREASED [None]
  - BLOOD GLUCOSE INCREASED [None]
  - CARDIAC DISORDER [None]
  - CORONARY ARTERY OCCLUSION [None]
  - DRUG HYPERSENSITIVITY [None]
  - DRUG INEFFECTIVE [None]
  - FALL [None]
  - FEMUR FRACTURE [None]
  - GANGRENE [None]
  - GASTRIC DISORDER [None]
  - GLUCAGON SECRETION DISORDER [None]
  - HYPOAESTHESIA [None]
  - INJECTION SITE DISCHARGE [None]
  - MYOCARDIAL INFARCTION [None]
  - NEUROPATHY PERIPHERAL [None]
  - PNEUMONIA [None]
  - RENAL DISORDER [None]
  - RETINAL HAEMORRHAGE [None]
  - SKIN NECROSIS [None]
  - STAPHYLOCOCCAL INFECTION [None]
